FAERS Safety Report 11215641 (Version 3)
Quarter: 2015Q3

REPORT INFORMATION
  Report Type: Spontaneous
  Country: US (occurrence: US)
  Receive Date: 20150624
  Receipt Date: 20150929
  Transmission Date: 20151125
  Serious: Yes (Hospitalization, Other)
  Sender: FDA-Public Use
  Company Number: US-PFIZER INC-2015207673

PATIENT
  Age: 47 Year
  Sex: Male
  Weight: 77 kg

DRUGS (6)
  1. LYRICA [Suspect]
     Active Substance: PREGABALIN
     Indication: SEIZURE
     Dosage: 300 MG, 2X/DAY
     Route: 048
     Dates: start: 20080115
  2. LYRICA [Suspect]
     Active Substance: PREGABALIN
     Indication: TEMPORAL LOBE EPILEPSY
     Dosage: 75 MG, 4X/DAY
  3. TOPIRAMATE. [Concomitant]
     Active Substance: TOPIRAMATE
     Dosage: 200 MG, DAILY (BROKE TABLET IN HALF AND TOOK 100 MG IN THE MORNING AND 100 MG AT NIGHT)
     Route: 048
  4. LISINOPRIL. [Concomitant]
     Active Substance: LISINOPRIL
     Dosage: 10 MG, DAILY
  5. ATORVASTATIN [Concomitant]
     Active Substance: ATORVASTATIN
     Dosage: 40 MG, DAILY
  6. LYRICA [Suspect]
     Active Substance: PREGABALIN
     Indication: EPILEPSY

REACTIONS (3)
  - Cerebrovascular accident [Recovered/Resolved]
  - Arthropathy [Recovered/Resolved]
  - Muscular weakness [Recovered/Resolved]

NARRATIVE: CASE EVENT DATE: 20140515
